FAERS Safety Report 13371516 (Version 2)
Quarter: 2017Q1

REPORT INFORMATION
  Report Type: Spontaneous
  Country: FR (occurrence: FR)
  Receive Date: 20170324
  Receipt Date: 20170327
  Transmission Date: 20170429
  Serious: No
  Sender: FDA-Public Use
  Company Number: FR-009507513-1703FRA010352

PATIENT
  Age: 47 Year
  Sex: Female

DRUGS (6)
  1. INEXIUM (ESOMEPRAZOLE MAGNESIUM) [Suspect]
     Active Substance: ESOMEPRAZOLE MAGNESIUM
     Dosage: UNK
     Route: 042
  2. MAGNESIUM CHLORIDE. [Suspect]
     Active Substance: MAGNESIUM CHLORIDE
     Dosage: UNK
     Route: 042
  3. NOXAFIL [Concomitant]
     Active Substance: POSACONAZOLE
     Dosage: UNK
     Route: 048
  4. NOXAFIL [Suspect]
     Active Substance: POSACONAZOLE
     Indication: PROPHYLAXIS
     Dosage: 300 MG, UNK
     Route: 042
  5. CERNEVIT [Suspect]
     Active Substance: VITAMINS
     Dosage: UNK
     Route: 042
  6. POTASSIUM CHLORIDE. [Suspect]
     Active Substance: POTASSIUM CHLORIDE
     Dosage: UNK
     Route: 042

REACTIONS (2)
  - Drug administration error [Unknown]
  - Product deposit [Unknown]

NARRATIVE: CASE EVENT DATE: 20170319
